FAERS Safety Report 23674800 (Version 1)
Quarter: 2024Q1

REPORT INFORMATION
  Report Type: Spontaneous
  Country: RU (occurrence: RU)
  Receive Date: 20240326
  Receipt Date: 20240326
  Transmission Date: 20240410
  Serious: Yes (Hospitalization)
  Sender: FDA-Public Use
  Company Number: None

PATIENT
  Sex: Male

DRUGS (5)
  1. ORKAMBI [Suspect]
     Active Substance: IVACAFTOR\LUMACAFTOR
     Indication: Cystic fibrosis
     Dosage: 150MG LUMACAFTOR/ 188MG IVACAFTOR, BID
     Route: 048
     Dates: start: 20220423
  2. TIGERASE [Concomitant]
     Indication: Cystic fibrosis
     Dosage: 2.5MG/ML, QD
     Dates: start: 2020
  3. PANCREATIN [Concomitant]
     Active Substance: PANCRELIPASE
     Indication: Cystic fibrosis
     Dosage: 40000 UNITS 3 TIMES A DAY, 15000 UNITS FOR SNACKS
     Route: 048
     Dates: start: 20240101
  4. URSODIOL [Concomitant]
     Active Substance: URSODIOL
     Indication: Cystic fibrosis
     Dosage: 125 MG IN THE AM, 250 MG IN THE PM
     Route: 048
     Dates: start: 20240101
  5. TOBRAMYCIN [Concomitant]
     Active Substance: TOBRAMYCIN
     Dosage: UNK
     Dates: start: 201909

REACTIONS (1)
  - Pseudomonas infection [Unknown]

NARRATIVE: CASE EVENT DATE: 20230703
